FAERS Safety Report 8918902 (Version 2)
Quarter: 2012Q4

REPORT INFORMATION
  Report Type: 
  Country: US (occurrence: US)
  Receive Date: 20121121
  Receipt Date: 20121220
  Transmission Date: 20130627
  Serious: Yes (Other)
  Sender: FDA-Public Use
  Company Number: US-BAYER-2012-120284

PATIENT
  Age: 55 Year
  Sex: Female
  Weight: 56.24 kg

DRUGS (1)
  1. CLIMARA PRO [Suspect]
     Indication: HOT FLASHES
     Dosage: 1/2 patch qwk
     Route: 062
     Dates: start: 2009, end: 20121112

REACTIONS (2)
  - Vaginal haemorrhage [Recovered/Resolved]
  - Vaginal haemorrhage [Not Recovered/Not Resolved]
